FAERS Safety Report 6566777-4 (Version None)
Quarter: 2010Q1

REPORT INFORMATION
  Report Type: 
  Country: None (occurrence: None)
  Receive Date: 20100202
  Receipt Date: 20100127
  Transmission Date: 20100710
  Serious: Yes (Hospitalization)
  Sender: FDA-Public Use
  Company Number: US-ELI_LILLY_AND_COMPANY-US201001000335

PATIENT
  Sex: Male
  Weight: 86.44 kg

DRUGS (1)
  1. DULOXETINE HYDROCHLORIDE [Suspect]
     Indication: DEPRESSION
     Dosage: 30 MG, 2/D
     Route: 048
     Dates: start: 20090923

REACTIONS (8)
  - CLAVICLE FRACTURE [None]
  - COMMINUTED FRACTURE [None]
  - CONSTIPATION [None]
  - CONTUSION [None]
  - LOSS OF CONSCIOUSNESS [None]
  - MULTIPLE INJURIES [None]
  - RIB FRACTURE [None]
  - ROAD TRAFFIC ACCIDENT [None]
